FAERS Safety Report 7271260-7 (Version None)
Quarter: 2011Q1

REPORT INFORMATION
  Report Type: 
  Country: None (occurrence: None)
  Receive Date: 20110203
  Receipt Date: 20110121
  Transmission Date: 20110831
  Serious: Yes (Death, Hospitalization, Other)
  Sender: FDA-Public Use
  Company Number: US-BIOGENIDEC-2011BI001500

PATIENT
  Age: 54 Year
  Sex: Female

DRUGS (9)
  1. BACLOFEN [Concomitant]
     Route: 048
  2. LEVOTHYROXINE [Concomitant]
     Indication: HYPOTHYROIDISM
     Route: 048
  3. TYSABRI [Suspect]
     Indication: MULTIPLE SCLEROSIS
     Route: 042
     Dates: start: 20081219, end: 20101006
  4. OXYBUTYNIN [Concomitant]
     Indication: URINARY RETENTION
     Route: 048
  5. FLUOXETINE [Concomitant]
     Route: 048
  6. AMANTADINE HCL [Concomitant]
     Route: 048
  7. CYANOCOBALAMIN [Concomitant]
     Route: 030
  8. ATOMEXETINE [Concomitant]
     Route: 048
  9. GABAPENTIN [Concomitant]

REACTIONS (3)
  - MULTIPLE SCLEROSIS RELAPSE [None]
  - CYSTITIS [None]
  - PROGRESSIVE MULTIFOCAL LEUKOENCEPHALOPATHY [None]
